FAERS Safety Report 6522618-2 (Version None)
Quarter: 2009Q4

REPORT INFORMATION
  Report Type: 
  Country: None (occurrence: None)
  Receive Date: 20091214
  Receipt Date: 20090904
  Transmission Date: 20100525
  Serious: Yes (Other)
  Sender: FDA-Public Use
  Company Number: 655156

PATIENT
  Age: 55 Year
  Sex: Female
  Weight: 78.9 kg

DRUGS (7)
  1. PEGASYS [Suspect]
     Indication: HEPATITIS C
     Dosage: 180 UG 1 PER WEEK SUBCUTANEOUS
     Route: 058
     Dates: start: 20090421, end: 20090805
  2. RIBAVIRIN [Suspect]
     Indication: HEPATITIS C
     Dosage: 600 MG 2 PER DAY ORAL
     Route: 048
     Dates: start: 20090421, end: 20090805
  3. INSULIN (INSULIN) [Concomitant]
  4. RISPERDAL [Concomitant]
  5. REMERON [Concomitant]
  6. COGENTIN [Concomitant]
  7. GLUCOPHAGE [Concomitant]

REACTIONS (3)
  - ANAEMIA [None]
  - DIZZINESS [None]
  - VIROLOGIC FAILURE [None]
